FAERS Safety Report 4663742-9 (Version None)
Quarter: 2005Q2

REPORT INFORMATION
  Report Type: 
  Country: None (occurrence: None)
  Receive Date: 20050511
  Receipt Date: 20050311
  Transmission Date: 20051028
  Serious: Yes (Hospitalization)
  Sender: FDA-Public Use
  Company Number: 398579

PATIENT
  Age: 54 Year
  Sex: Female
  Weight: 54.4 kg

DRUGS (3)
  1. PEGASYS [Suspect]
     Indication: HEPATITIS C VIRUS
     Dosage: 180 MG, 1 PER WEEK, SUBCUTANEOUS
     Route: 058
     Dates: start: 20040905
  2. COPEGUS [Suspect]
     Indication: HEPATITIS C VIRUS
     Dosage: 800 MG, DAILY, ORAL
     Route: 048
     Dates: start: 20040905, end: 20041115
  3. AMBIEN [Concomitant]

REACTIONS (5)
  - ABDOMINAL PAIN [None]
  - BACK PAIN [None]
  - HAEMOGLOBIN DECREASED [None]
  - IRRITABILITY [None]
  - MYALGIA [None]
